FAERS Safety Report 6853902-0 (Version None)
Quarter: 2010Q3

REPORT INFORMATION
  Report Type: 
  Country: None (occurrence: None)
  Receive Date: 20100717
  Receipt Date: 20080129
  Transmission Date: 20110219
  Serious: No
  Sender: FDA-Public Use
  Company Number: US-PFIZER INC-2007106276

PATIENT
  Sex: Female
  Weight: 83.636 kg

DRUGS (9)
  1. CHANTIX [Suspect]
     Indication: SMOKING CESSATION THERAPY
     Route: 048
     Dates: start: 20071101
  2. ALLEGRA [Concomitant]
  3. MONTELUKAST SODIUM [Concomitant]
  4. FISH OIL [Concomitant]
  5. ACETYLSALICYLIC ACID [Concomitant]
  6. SPIRIVA [Concomitant]
  7. VITACAL [Concomitant]
  8. RHINOCORT [Concomitant]
  9. NEXIUM [Concomitant]

REACTIONS (7)
  - ABNORMAL DREAMS [None]
  - CONSTIPATION [None]
  - FLATULENCE [None]
  - IRRITABILITY [None]
  - NAUSEA [None]
  - TONGUE DISORDER [None]
  - TREMOR [None]
